FAERS Safety Report 15493895 (Version 3)
Quarter: 2018Q4

REPORT INFORMATION
  Report Type: Report from Study
  Country: GB (occurrence: GB)
  Receive Date: 20181012
  Receipt Date: 20181024
  Transmission Date: 20190205
  Serious: Yes (Death, Hospitalization, Other)
  Sender: FDA-Public Use
  Company Number: GB-CELGENEUS-GBR-20181002300

PATIENT
  Age: 64 Year
  Sex: Female

DRUGS (1)
  1. REVLIMID [Suspect]
     Active Substance: LENALIDOMIDE
     Indication: PLASMA CELL MYELOMA
     Route: 048
     Dates: start: 20140203, end: 20180823

REACTIONS (2)
  - Urinary tract infection [Fatal]
  - Malignant neoplasm of unknown primary site [Not Recovered/Not Resolved]

NARRATIVE: CASE EVENT DATE: 20180918
